FAERS Safety Report 14735572 (Version 3)
Quarter: 2020Q3

REPORT INFORMATION
  Report Type: Report from Study
  Country: RU (occurrence: RU)
  Receive Date: 20180409
  Receipt Date: 20191024
  Transmission Date: 20201104
  Serious: Yes (Hospitalization)
  Sender: FDA-Public Use
  Company Number: RU-JNJFOC-20180344428

PATIENT
  Age: 31 Year
  Sex: Female
  Weight: 51.8 kg

DRUGS (2)
  1. MESALAZINE [Concomitant]
     Active Substance: MESALAMINE
     Indication: COLITIS ULCERATIVE
     Route: 048
     Dates: start: 20160515
  2. USTEKINUMAB [Suspect]
     Active Substance: USTEKINUMAB
     Indication: COLITIS ULCERATIVE
     Dosage: AT 12.00 HOURS?MED. KIT NO: 9015934
     Route: 058
     Dates: start: 20170210

REACTIONS (1)
  - Human herpesvirus 6 infection [Recovered/Resolved]

NARRATIVE: CASE EVENT DATE: 20180306
